FAERS Safety Report 10141543 (Version 1)
Quarter: 2014Q2

REPORT INFORMATION
  Report Type: Spontaneous
  Country: US (occurrence: US)
  Receive Date: 20140429
  Receipt Date: 20140429
  Transmission Date: 20141212
  Serious: Yes (Hospitalization)
  Sender: FDA-Public Use
  Company Number: US-VIIV HEALTHCARE LIMITED-A1071195A

PATIENT
  Age: 41 Year
  Sex: Male

DRUGS (2)
  1. TIVICAY [Suspect]
     Indication: PRODUCT USED FOR UNKNOWN INDICATION
     Dosage: 50MG PER DAY
     Route: 065
  2. EPZICOM [Concomitant]

REACTIONS (1)
  - Hepatic failure [Recovered/Resolved]
